FAERS Safety Report 13651543 (Version 1)
Quarter: 2017Q2

REPORT INFORMATION
  Report Type: Spontaneous
  Country: US (occurrence: US)
  Receive Date: 20170614
  Receipt Date: 20170614
  Transmission Date: 20170830
  Serious: No
  Sender: FDA-Public Use
  Company Number: US-009507513-1706USA005837

PATIENT
  Age: 57 Year
  Sex: Female

DRUGS (2)
  1. CLOBETASOL PROPIONATE. [Suspect]
     Active Substance: CLOBETASOL PROPIONATE
     Indication: MYCOSIS FUNGOIDES
     Dosage: UNK, BID
     Route: 061
  2. HEXADROL [Suspect]
     Active Substance: DEXAMETHASONE
     Indication: MYCOSIS FUNGOIDES
     Dosage: UNK, TO BE TAKEN FOR 21 DAYS WITH TAPERING DOSAGE
     Route: 048

REACTIONS (1)
  - Drug ineffective [Unknown]
